FAERS Safety Report 25442226 (Version 2)
Quarter: 2025Q2

REPORT INFORMATION
  Report Type: Report from Study
  Country: US (occurrence: US)
  Receive Date: 20250616
  Receipt Date: 20250627
  Transmission Date: 20250716
  Serious: Yes (Other)
  Sender: TAKEDA
  Company Number: US-TAKEDA-2024TUS040744

PATIENT
  Sex: Female
  Weight: 62 kg

DRUGS (13)
  1. LANADELUMAB [Suspect]
     Active Substance: LANADELUMAB
     Indication: Angioedema
     Dosage: 300 MILLIGRAM, Q4WEEKS
     Dates: start: 20221103
  2. LANADELUMAB [Suspect]
     Active Substance: LANADELUMAB
     Dosage: 300 MILLIGRAM, Q4WEEKS
  3. LANADELUMAB [Suspect]
     Active Substance: LANADELUMAB
  4. BACLOFEN [Concomitant]
     Active Substance: BACLOFEN
  5. HYDROCHLOROTHIAZIDE\OLMESARTAN MEDOXOMIL [Concomitant]
     Active Substance: HYDROCHLOROTHIAZIDE\OLMESARTAN MEDOXOMIL
  6. CALCIUM [Concomitant]
     Active Substance: CALCIUM
  7. ICATIBANT [Concomitant]
     Active Substance: ICATIBANT ACETATE
  8. AMLODIPINE BESYLATE AND BENAZEPRIL HYDROCHLORIDE [Concomitant]
     Active Substance: AMLODIPINE BESYLATE\BENAZEPRIL HYDROCHLORIDE
  9. Hair skin nails [Concomitant]
  10. AMLODIPINE BESYLATE [Concomitant]
     Active Substance: AMLODIPINE BESYLATE
  11. OTEZLA [Concomitant]
     Active Substance: APREMILAST
  12. ATORVASTATIN CALCIUM [Concomitant]
     Active Substance: ATORVASTATIN CALCIUM
  13. ASPIRIN [Concomitant]
     Active Substance: ASPIRIN

REACTIONS (6)
  - Pneumonia [Not Recovered/Not Resolved]
  - Arthritis [Unknown]
  - Incorrect dose administered [Unknown]
  - COVID-19 [Unknown]
  - Product dose omission issue [Unknown]
  - Hereditary angioedema [Unknown]
